FAERS Safety Report 6731220-9 (Version None)
Quarter: 2010Q2

REPORT INFORMATION
  Report Type: 
  Country: None (occurrence: None)
  Receive Date: 20100517
  Receipt Date: 20100517
  Transmission Date: 20101027
  Serious: Yes (Disabling)
  Sender: FDA-Public Use
  Company Number: None

PATIENT
  Sex: Male
  Weight: 96.1626 kg

DRUGS (1)
  1. HYDROXYUREA CAPS 500MG PAR [Suspect]
     Dosage: 2 EACH 500MG DAILY SL
     Route: 060

REACTIONS (3)
  - DRUG EFFECT DECREASED [None]
  - PLATELET COUNT INCREASED [None]
  - PRODUCT QUALITY ISSUE [None]
